FAERS Safety Report 9980593 (Version 1)
Quarter: 2014Q1

REPORT INFORMATION
  Report Type: Spontaneous
  Country: US (occurrence: US)
  Receive Date: 20140307
  Receipt Date: 20140307
  Transmission Date: 20141002
  Serious: No
  Sender: FDA-Public Use
  Company Number: US-BIOGENIDEC-2014BI020585

PATIENT
  Age: 53 Year
  Sex: Female

DRUGS (6)
  1. AVONEX [Suspect]
     Indication: MULTIPLE SCLEROSIS
     Route: 030
     Dates: start: 20130207
  2. CALCIUM 600 [Concomitant]
  3. KLOR-CON [Concomitant]
  4. LISINOPRIL-HYDROCHLOROTHIAZIDE [Concomitant]
  5. POTASSIUM CHLORIDE ER [Concomitant]
  6. SETRALINE HCL [Concomitant]

REACTIONS (1)
  - Influenza [Unknown]
